FAERS Safety Report 6339498-0 (Version None)
Quarter: 2009Q3

REPORT INFORMATION
  Report Type: 
  Country: None (occurrence: None)
  Receive Date: 20090827
  Receipt Date: 20090723
  Transmission Date: 20100115
  Serious: No
  Sender: FDA-Public Use
  Company Number: 001156

PATIENT
  Sex: Male
  Weight: 65.8 kg

DRUGS (3)
  1. LACOSAMIDE [Suspect]
     Indication: DRUG WITHDRAWAL CONVULSIONS
     Dosage: (50 MG BID ORAL), (100 MG BID ORAL)
     Route: 048
     Dates: start: 20090702, end: 20090709
  2. LACOSAMIDE [Suspect]
     Indication: DRUG WITHDRAWAL CONVULSIONS
     Dosage: (50 MG BID ORAL), (100 MG BID ORAL)
     Route: 048
     Dates: start: 20090709, end: 20090716
  3. ATIVAN [Concomitant]

REACTIONS (5)
  - AGITATION [None]
  - DIARRHOEA [None]
  - EYE MOVEMENT DISORDER [None]
  - PANIC ATTACK [None]
  - VOMITING [None]
